FAERS Safety Report 9539454 (Version 1)
Quarter: 2013Q3

REPORT INFORMATION
  Report Type: Spontaneous
  Country: BY (occurrence: None)
  Receive Date: 20130917
  Receipt Date: 20130917
  Transmission Date: 20140515
  Serious: Yes (Other)
  Sender: FDA-Public Use
  Company Number: CO-OR-BY-2013-053

PATIENT
  Sex: 0

DRUGS (1)
  1. PREDNISOLONE [Suspect]
     Indication: NEPHROPATHY

REACTIONS (1)
  - Diabetes mellitus [None]
